FAERS Safety Report 20489152 (Version 1)
Quarter: 2022Q1

REPORT INFORMATION
  Report Type: Spontaneous
  Country: PL (occurrence: PL)
  Receive Date: 20220218
  Receipt Date: 20220218
  Transmission Date: 20220423
  Serious: Yes (Other)
  Sender: FDA-Public Use
  Company Number: PL-SUN PHARMACEUTICAL INDUSTRIES LTD-2022RR-327402

PATIENT
  Age: 26 Year
  Sex: Female

DRUGS (6)
  1. IRINOTECAN [Suspect]
     Active Substance: IRINOTECAN
     Indication: Adenocarcinoma
     Dosage: XELIRI REGIMEN
     Route: 065
  2. OXALIPLATIN [Suspect]
     Active Substance: OXALIPLATIN
     Indication: Adenocarcinoma
     Dosage: FOLFOX4, 10 INFUSIONS
     Route: 065
     Dates: start: 201412, end: 201506
  3. CAPECITABINE [Suspect]
     Active Substance: CAPECITABINE
     Indication: Adenocarcinoma
     Dosage: XELIRI REGIMEN
     Route: 065
  4. PREDNISONE [Suspect]
     Active Substance: PREDNISONE
     Indication: Adenocarcinoma
     Dosage: 20 MILLIGRAM, UNK
     Route: 065
  5. FLUOROURACIL [Suspect]
     Active Substance: FLUOROURACIL
     Indication: Adenocarcinoma
     Dosage: FOLFOX4, 10 INFUSIONS
     Route: 065
     Dates: start: 201412, end: 201506
  6. MITOMYCIN [Suspect]
     Active Substance: MITOMYCIN
     Indication: Adenocarcinoma
     Dosage: UNK
     Route: 065

REACTIONS (5)
  - Neutropenia [Unknown]
  - Disease progression [Unknown]
  - Thrombocytopenia [Unknown]
  - Ovarian cyst [Unknown]
  - Therapeutic product effect incomplete [Unknown]
